FAERS Safety Report 6241460-3 (Version None)
Quarter: 2009Q2

REPORT INFORMATION
  Report Type: 
  Country: None (occurrence: None)
  Receive Date: 20090623
  Receipt Date: 20040330
  Transmission Date: 20091009
  Serious: Yes (Hospitalization, Other)
  Sender: FDA-Public Use
  Company Number: BR-ROCHE-341020

PATIENT
  Sex: Male
  Weight: 64 kg

DRUGS (28)
  1. DACLIZUMAB [Suspect]
     Route: 042
     Dates: start: 20030402
  2. DACLIZUMAB [Suspect]
     Route: 042
     Dates: start: 20030416, end: 20030527
  3. MYCOPHENOLATE MOFETIL [Suspect]
     Route: 048
     Dates: start: 20030401, end: 20040328
  4. MYCOPHENOLATE MOFETIL [Suspect]
     Route: 048
     Dates: start: 20040329
  5. SIROLIMUS [Suspect]
     Route: 048
     Dates: start: 20030401
  6. SIROLIMUS [Suspect]
     Route: 048
     Dates: start: 20030404, end: 20030501
  7. SIROLIMUS [Suspect]
     Route: 048
     Dates: start: 20030502
  8. PREDNISONE [Suspect]
     Route: 048
     Dates: start: 20030404, end: 20030716
  9. PREDNISONE [Suspect]
     Route: 048
     Dates: start: 20030717
  10. METHYLPREDNISOLONE [Suspect]
     Route: 042
     Dates: start: 20030402, end: 20030402
  11. METHYLPREDNISOLONE [Suspect]
     Route: 042
     Dates: start: 20030403, end: 20030403
  12. METHYLPREDNISOLONE [Suspect]
     Route: 042
     Dates: start: 20030404, end: 20030404
  13. METHYLPREDNISOLONE [Suspect]
     Route: 042
     Dates: start: 20030411, end: 20030414
  14. SIMVASTATIN [Concomitant]
     Route: 048
     Dates: start: 20030513
  15. OMEPRAZOL [Concomitant]
     Route: 048
     Dates: start: 20030403, end: 20030506
  16. AMLODIPINE [Concomitant]
     Route: 048
     Dates: start: 20030402
  17. AMLODIPINE [Concomitant]
     Route: 048
     Dates: start: 20030403
  18. GLIBENCLAMIDE [Concomitant]
     Route: 048
     Dates: start: 20030716, end: 20030722
  19. SULFAMETHOXAZOLE AND TRIMETHOPRIM [Concomitant]
     Route: 048
     Dates: start: 20030429
  20. AMIKACIN [Concomitant]
     Dosage: DRUG: AMIACIN
     Route: 042
     Dates: start: 20030402
  21. AMPICILLIN [Concomitant]
     Route: 042
     Dates: start: 20030402
  22. ATENOLOL [Concomitant]
     Route: 048
     Dates: start: 20030403, end: 20030429
  23. CEFAZOLIN [Concomitant]
     Route: 042
     Dates: start: 20030626
  24. CEFUROXIME [Concomitant]
     Route: 048
     Dates: start: 20030629, end: 20030707
  25. FUROSEMIDE [Concomitant]
     Route: 048
     Dates: start: 20030407, end: 20030407
  26. FUROSEMIDE [Concomitant]
     Route: 048
     Dates: start: 20030411, end: 20030416
  27. FUROSEMIDE [Concomitant]
     Route: 042
     Dates: start: 20030407, end: 20030410
  28. NEOMYCIN [Concomitant]
     Dosage: DRUG: NEOMICIN
     Route: 061
     Dates: start: 20030406, end: 20030425

REACTIONS (3)
  - LYMPHOCELE [None]
  - WOUND DEHISCENCE [None]
  - WOUND INFECTION [None]
